FAERS Safety Report 5288169-0 (Version None)
Quarter: 2007Q2

REPORT INFORMATION
  Report Type: 
  Country: None (occurrence: None)
  Receive Date: 20070405
  Receipt Date: 20070326
  Transmission Date: 20071010
  Serious: Yes (Other)
  Sender: FDA-Public Use
  Company Number: GB-JNJFOC-20070306682

PATIENT
  Age: 55 Year
  Sex: Male

DRUGS (2)
  1. REMINYL [Suspect]
     Indication: DEMENTIA
     Route: 048
  2. SEROXAT [Concomitant]
     Indication: DEPRESSION
     Route: 048

REACTIONS (1)
  - HAEMATEMESIS [None]
